FAERS Safety Report 13517937 (Version 2)
Quarter: 2017Q2

REPORT INFORMATION
  Report Type: Spontaneous
  Country: GB (occurrence: GB)
  Receive Date: 20170505
  Receipt Date: 20170515
  Transmission Date: 20170830
  Serious: Yes (Other)
  Sender: FDA-Public Use
  Company Number: GB-GLAXOSMITHKLINE-GB2017GSK060547

PATIENT
  Age: 80 Year
  Sex: Male

DRUGS (3)
  1. PARACETAMOL [Concomitant]
     Active Substance: ACETAMINOPHEN
     Indication: PRODUCT USED FOR UNKNOWN INDICATION
     Dosage: UNK
  2. VOLTAROL EMULGEL P (DICLOFENAC DIETHYLAMMONIUM SALT) [Suspect]
     Active Substance: DICLOFENAC DIETHYLAMINE
     Indication: CHEST PAIN
     Dosage: UNK
     Route: 065
  3. VOLTAROL 12 HOUR (DICLOFENAC DIETHYLAMMONIUM SALT) [Suspect]
     Active Substance: DICLOFENAC DIETHYLAMINE
     Indication: CHEST PAIN
     Dosage: UNK
     Dates: start: 1997, end: 20170421

REACTIONS (6)
  - Chest pain [Not Recovered/Not Resolved]
  - Drug ineffective [Unknown]
  - Drug use disorder [Unknown]
  - Intentional product misuse [Unknown]
  - Intentional product use issue [Unknown]
  - Expired product administered [Unknown]
